FAERS Safety Report 4552263-X (Version None)
Quarter: 2004Q4

REPORT INFORMATION
  Report Type: 
  Country: None (occurrence: None)
  Receive Date: 20041217
  Receipt Date: 20040801
  Transmission Date: 20050328
  Serious: No
  Sender: FDA-Public Use
  Company Number: 2004-BP-06446BP

PATIENT
  Sex: Male

DRUGS (5)
  1. SPIRIVA [Suspect]
     Indication: ASTHMA
     Dosage: 18 MCG (18 MCG, BID), IH
     Route: 055
  2. FORTICAL [Concomitant]
  3. QVAR 80 [Concomitant]
  4. SINGULAIR [Concomitant]
  5. PREDNISONE [Concomitant]

REACTIONS (2)
  - INCREASED BRONCHIAL SECRETION [None]
  - WHEEZING [None]
